FAERS Safety Report 10399464 (Version 2)
Quarter: 2014Q3

REPORT INFORMATION
  Report Type: Spontaneous
  Country: DE (occurrence: DE)
  Receive Date: 20140821
  Receipt Date: 20140821
  Transmission Date: 20150326
  Serious: Yes (Life-Threatening, Hospitalization, Other)
  Sender: FDA-Public Use
  Company Number: DE-ACTELION-A-CH2014-100990

PATIENT
  Age: 78 Year
  Sex: Female
  Weight: 90 kg

DRUGS (1)
  1. OPSUMIT [Suspect]
     Active Substance: MACITENTAN
     Indication: PULMONARY ARTERIAL HYPERTENSION
     Dosage: 10 MG, QD
     Route: 048
     Dates: end: 201407

REACTIONS (5)
  - Angioedema [Recovered/Resolved]
  - Condition aggravated [Unknown]
  - Renal failure acute [Recovered/Resolved]
  - Cardiac failure congestive [Recovered/Resolved]
  - Dialysis [Recovered/Resolved]
